FAERS Safety Report 19626455 (Version 1)
Quarter: 2021Q3

REPORT INFORMATION
  Report Type: Spontaneous
  Country: ES (occurrence: ES)
  Receive Date: 20210729
  Receipt Date: 20210729
  Transmission Date: 20211014
  Serious: Yes (Hospitalization, Other)
  Sender: FDA-Public Use
  Company Number: ES-PFIZER INC-2021895527

PATIENT
  Age: 77 Year
  Sex: Female

DRUGS (9)
  1. SOLIFENACIN [Concomitant]
     Active Substance: SOLIFENACIN
     Dosage: UNK
     Route: 065
  2. TAPENTADOL [Concomitant]
     Active Substance: TAPENTADOL
     Dosage: UNK
     Route: 065
  3. HYDROCHLOROTHIAZIDE. [Concomitant]
     Active Substance: HYDROCHLOROTHIAZIDE
     Dosage: UNK
     Route: 065
  4. PARACETAMOL CODEINE [Concomitant]
     Active Substance: ACETAMINOPHEN\CODEINE PHOSPHATE
     Indication: COUGH
     Dosage: UNK
     Route: 065
  5. LATANOPROST. [Concomitant]
     Active Substance: LATANOPROST
     Dosage: UNK
     Route: 065
  6. IPRATROPIUM [Concomitant]
     Active Substance: IPRATROPIUM
     Indication: COUGH
     Dosage: UNK
     Route: 065
  7. AZITHROMYCIN ANHYDROUS. [Suspect]
     Active Substance: AZITHROMYCIN ANHYDROUS
     Indication: COUGH
     Dosage: UNK
     Route: 065
  8. PREGABALIN. [Concomitant]
     Active Substance: PREGABALIN
     Dosage: UNK
     Route: 065
  9. CITALOPRAM [Concomitant]
     Active Substance: CITALOPRAM HYDROBROMIDE
     Route: 065

REACTIONS (4)
  - Abdominal pain [Recovering/Resolving]
  - Colitis ischaemic [Unknown]
  - Rectal haemorrhage [Unknown]
  - Diarrhoea [Unknown]
